FAERS Safety Report 21842400 (Version 4)
Quarter: 2023Q1

REPORT INFORMATION
  Report Type: Spontaneous
  Country: IT (occurrence: IT)
  Receive Date: 20230110
  Receipt Date: 20230215
  Transmission Date: 20230418
  Serious: Yes (Hospitalization, Other)
  Sender: FDA-Public Use
  Company Number: IT-CHEPLA-2022010650

PATIENT
  Age: 62 Year
  Sex: Female
  Weight: 50 kg

DRUGS (10)
  1. PACLITAXEL [Suspect]
     Active Substance: PACLITAXEL
     Indication: Squamous cell carcinoma of the oral cavity
     Dosage: 80 MILLIGRAM/SQ. METER DAYS 1, 8, AND 15
     Route: 042
     Dates: start: 20220609, end: 20221013
  2. BUPARLISIB [Suspect]
     Active Substance: BUPARLISIB
     Indication: Squamous cell carcinoma of the oral cavity
     Dosage: 100 MILLIGRAM, QD DOSE PRIOR TO SAE ON 19-OCT-2022
     Route: 048
     Dates: start: 20220608, end: 20221019
  3. LEVOTHYROXINE [Concomitant]
     Active Substance: LEVOTHYROXINE
     Indication: Hypothyroidism
     Dosage: 25 MICROGRAM, QD
     Route: 048
     Dates: start: 2018
  4. ENOXAPARIN [Concomitant]
     Active Substance: ENOXAPARIN
     Indication: Thrombosis
     Dosage: 8000 INTERNATIONAL UNIT, QD
     Route: 058
     Dates: start: 20220421
  5. NALOXONE HYDROCHLORIDE\OXYCODONE HYDROCHLORIDE [Concomitant]
     Active Substance: NALOXONE HYDROCHLORIDE\OXYCODONE HYDROCHLORIDE
     Indication: Pain
     Dosage: 40 MILLIGRAM, QD
     Route: 048
     Dates: start: 2022
  6. PREGABALIN [Concomitant]
     Active Substance: PREGABALIN
     Indication: Pain
     Dosage: 75 MG, BID
     Route: 048
     Dates: start: 20220601
  7. DICLOFENAC [Concomitant]
     Active Substance: DICLOFENAC
     Indication: Pain
     Dosage: 25 MILLIGRAM, QD
     Route: 048
     Dates: start: 2022
  8. BISOPROLOL [Concomitant]
     Active Substance: BISOPROLOL
     Indication: Hypertension
     Dosage: 2.5 GRAM, QD
     Route: 048
     Dates: start: 2022
  9. CLONAZEPAM [Concomitant]
     Active Substance: CLONAZEPAM
     Indication: Insomnia
     Dosage: 9 DROP (1/12 MILLILITRE), QD (9 GTT, QD)
     Route: 048
     Dates: start: 2022
  10. ACETAMINOPHEN [Concomitant]
     Active Substance: ACETAMINOPHEN
     Indication: Pain
     Dosage: 1 GRAM, BID
     Route: 048
     Dates: start: 2022

REACTIONS (7)
  - Pneumonitis [Recovering/Resolving]
  - Alveolitis [Recovering/Resolving]
  - Neuropathy peripheral [Not Recovered/Not Resolved]
  - Mucosal inflammation [Not Recovered/Not Resolved]
  - Neutrophil count decreased [Recovered/Resolved]
  - Fatigue [Unknown]
  - Product use in unapproved indication [Unknown]

NARRATIVE: CASE EVENT DATE: 20220609
